FAERS Safety Report 19003454 (Version 1)
Quarter: 2021Q1

REPORT INFORMATION
  Report Type: Report from Study
  Country: DE (occurrence: DE)
  Receive Date: 20210312
  Receipt Date: 20210312
  Transmission Date: 20210420
  Serious: Yes (Death, Hospitalization)
  Sender: FDA-Public Use
  Company Number: DE-AUROBINDO-AUR-APL-2019-045230

PATIENT

DRUGS (6)
  1. MABTHERA [Suspect]
     Active Substance: RITUXIMAB
     Indication: DIFFUSE LARGE B-CELL LYMPHOMA
     Dosage: 250 MILLIGRAM/SQ. METER, EVERY WEEK
     Route: 042
     Dates: start: 20030429, end: 20030507
  2. ZEVALIN [Suspect]
     Active Substance: IBRITUMOMAB TIUXETAN
     Indication: NON-HODGKIN^S LYMPHOMA
     Dosage: 250 MG/M2 , SINGLE
     Route: 042
     Dates: start: 20030429, end: 20030429
  3. ZEVALIN [Suspect]
     Active Substance: IBRITUMOMAB TIUXETAN
     Dosage: 250 MG/M2, SINGLE
     Route: 042
     Dates: start: 20030507, end: 20030507
  4. ZEVALIN [Suspect]
     Active Substance: IBRITUMOMAB TIUXETAN
     Indication: DIFFUSE LARGE B-CELL LYMPHOMA
     Dosage: UNK, SINGLE , IN?[111] ZEVALIN
     Route: 042
     Dates: start: 20030429, end: 20030429
  5. ZEVALIN [Suspect]
     Active Substance: IBRITUMOMAB TIUXETAN
     Dosage: 0.4 MCI/KG, SINGLE, Y?[90] ZEVALIN
     Route: 042
     Dates: start: 20030507, end: 20030507
  6. ZEVALIN [Suspect]
     Active Substance: IBRITUMOMAB TIUXETAN
     Dosage: UNK UNK, ONCE A DAY
     Route: 042
     Dates: start: 20030507, end: 20030507

REACTIONS (4)
  - Diarrhoea [Fatal]
  - Oedema peripheral [Fatal]
  - Performance status decreased [Fatal]
  - Disease progression [Fatal]

NARRATIVE: CASE EVENT DATE: 20030530
